FAERS Safety Report 6786907-9 (Version None)
Quarter: 2010Q2

REPORT INFORMATION
  Report Type: 
  Country: None (occurrence: None)
  Receive Date: 20100621
  Receipt Date: 20100601
  Transmission Date: 20101027
  Serious: Yes (Hospitalization)
  Sender: FDA-Public Use
  Company Number: BR-001174

PATIENT
  Sex: Male
  Weight: 22.8 kg

DRUGS (1)
  1. NAGLAZYME [Suspect]
     Indication: MUCOPOLYSACCHARIDOSIS VI
     Dosage: 20 MG 1X/WEEK INTRAVENOUS DRIP
     Route: 041
     Dates: start: 20040709

REACTIONS (2)
  - BRONCHOSPASM [None]
  - TACHYCARDIA [None]
